FAERS Safety Report 9608297 (Version 2)
Quarter: 2013Q4

REPORT INFORMATION
  Report Type: Spontaneous
  Country: US (occurrence: US)
  Receive Date: 20131009
  Receipt Date: 20131009
  Transmission Date: 20140711
  Serious: No
  Sender: FDA-Public Use
  Company Number: US-PFIZER INC-2013278281

PATIENT
  Age: 64 Year
  Sex: Male
  Weight: 117.91 kg

DRUGS (6)
  1. LYRICA [Suspect]
     Indication: PERONEAL NERVE INJURY
     Dosage: 100 MG, 2X/DAY
     Route: 048
     Dates: start: 201112, end: 201308
  2. LYRICA [Suspect]
     Indication: NEURALGIA
  3. LYRICA [Suspect]
     Indication: NEUROPATHY PERIPHERAL
  4. ALLOPURINOL [Concomitant]
     Dosage: UNK
  5. HYDROCHLOROTHIAZIDE [Concomitant]
     Indication: HYPERTENSION
     Dosage: UNK
  6. CELEBREX [Concomitant]
     Indication: ARTHRALGIA
     Dosage: UNK

REACTIONS (2)
  - Off label use [Recovered/Resolved]
  - Therapeutic response unexpected [Unknown]
